FAERS Safety Report 7364455-5 (Version None)
Quarter: 2011Q1

REPORT INFORMATION
  Report Type: 
  Country: None (occurrence: None)
  Receive Date: 20110321
  Receipt Date: 20110316
  Transmission Date: 20110831
  Serious: Yes (Other)
  Sender: FDA-Public Use
  Company Number: FR-PFIZER INC-2007104333

PATIENT
  Age: 68 Year
  Sex: Female

DRUGS (9)
  1. AMPECYCLAL [Suspect]
     Route: 048
  2. ACTOS [Suspect]
     Indication: TYPE 2 DIABETES MELLITUS
     Dosage: 30 MG, UNK
     Route: 048
     Dates: start: 20060201, end: 20071001
  3. GLUCOPHAGE [Suspect]
     Indication: TYPE 2 DIABETES MELLITUS
     Dosage: DAILY
     Route: 048
  4. ZOCOR [Suspect]
     Indication: DYSLIPIDAEMIA
     Route: 048
  5. FLUDEX [Suspect]
     Route: 048
  6. BACLOFEN [Suspect]
     Route: 048
  7. AMARYL [Suspect]
     Indication: TYPE 2 DIABETES MELLITUS
     Route: 048
  8. MYOLASTAN [Suspect]
     Route: 048
  9. ACUITEL [Suspect]
     Route: 048

REACTIONS (2)
  - TIBIA FRACTURE [None]
  - PATHOLOGICAL FRACTURE [None]
